FAERS Safety Report 25119438 (Version 2)
Quarter: 2025Q2

REPORT INFORMATION
  Report Type: Spontaneous
  Country: JP (occurrence: JP)
  Receive Date: 20250325
  Receipt Date: 20250422
  Transmission Date: 20250716
  Serious: Yes (Death)
  Sender: ABBVIE
  Company Number: JP-TAKEDA-2025TJP003090

PATIENT
  Age: 70 Year
  Sex: Male

DRUGS (1)
  1. LEUPLIN [Suspect]
     Active Substance: LEUPROLIDE ACETATE
     Indication: Bulbospinal muscular atrophy congenital
     Dosage: FORM STRENGTH: 11.25 MILLIGRAM
     Route: 058

REACTIONS (1)
  - Bulbospinal muscular atrophy congenital [Fatal]

NARRATIVE: CASE EVENT DATE: 20231122
